FAERS Safety Report 20349090 (Version 1)
Quarter: 2022Q1

REPORT INFORMATION
  Report Type: Spontaneous
  Country: US (occurrence: US)
  Receive Date: 20220119
  Receipt Date: 20220119
  Transmission Date: 20220423
  Serious: No
  Sender: FDA-Public Use
  Company Number: US-GSKCCFUS-Case-01266825_AE-74085

PATIENT
  Sex: Female

DRUGS (2)
  1. SOTROVIMAB [Suspect]
     Active Substance: SOTROVIMAB
     Indication: Product used for unknown indication
     Dosage: 500 MG
     Dates: start: 20220106
  2. SOTROVIMAB [Suspect]
     Active Substance: SOTROVIMAB
     Dosage: 500 MG
     Dates: start: 20220111

REACTIONS (1)
  - Overdose [Unknown]

NARRATIVE: CASE EVENT DATE: 20220111
